FAERS Safety Report 23617440 (Version 1)
Quarter: 2024Q1

REPORT INFORMATION
  Report Type: Spontaneous
  Country: ES (occurrence: ES)
  Receive Date: 20240311
  Receipt Date: 20240311
  Transmission Date: 20240410
  Serious: Yes (Other)
  Sender: FDA-Public Use
  Company Number: None

PATIENT
  Age: 42 Year
  Sex: Male

DRUGS (1)
  1. ENALAPRIL MALEATE\HYDROCHLOROTHIAZIDE [Suspect]
     Active Substance: ENALAPRIL MALEATE\HYDROCHLOROTHIAZIDE
     Indication: Product used for unknown indication
     Dosage: 20 MG/12.5 MG 28 TABLETS
     Route: 065
     Dates: start: 20231115, end: 20231129

REACTIONS (4)
  - Headache [Unknown]
  - Paraesthesia oral [Unknown]
  - Dizziness [Unknown]
  - Tinnitus [Unknown]

NARRATIVE: CASE EVENT DATE: 20231129
